FAERS Safety Report 16233802 (Version 1)
Quarter: 2019Q2

REPORT INFORMATION
  Report Type: Spontaneous
  Country: FR (occurrence: FR)
  Receive Date: 20190424
  Receipt Date: 20190424
  Transmission Date: 20190711
  Serious: Yes (Hospitalization)
  Sender: FDA-Public Use
  Company Number: FR-SA-2019SA106794

PATIENT
  Age: 71 Year
  Sex: Male
  Weight: 58 kg

DRUGS (11)
  1. INNOHEP [Concomitant]
     Active Substance: TINZAPARIN SODIUM
  2. IMOVANE [Concomitant]
     Active Substance: ZOPICLONE
  3. OXALIPLATIN. [Suspect]
     Active Substance: OXALIPLATIN
     Indication: NEOPLASM MALIGNANT
     Dosage: UNK UNK, UNK
     Route: 041
     Dates: start: 20180122, end: 20180122
  4. OXALIPLATIN. [Suspect]
     Active Substance: OXALIPLATIN
     Dosage: UNK UNK, UNK
     Route: 041
     Dates: start: 20180219, end: 20180219
  5. CELLCEPT [Concomitant]
     Active Substance: MYCOPHENOLATE MOFETIL\MYCOPHENOLATE MOFETIL HYDROCHLORIDE
  6. HERCEPTIN [Concomitant]
     Active Substance: TRASTUZUMAB
  7. FLUOROURACIL. [Suspect]
     Active Substance: FLUOROURACIL
     Indication: NEOPLASM MALIGNANT
     Dosage: UNK UNK, UNK
     Route: 041
     Dates: start: 20180122, end: 20180122
  8. CALCIUM FOLINATE [Suspect]
     Active Substance: LEUCOVORIN CALCIUM
     Indication: NEOPLASM MALIGNANT
     Dosage: UNK UNK, UNK
     Route: 041
     Dates: start: 20180122, end: 20180122
  9. CALCIUM FOLINATE [Suspect]
     Active Substance: LEUCOVORIN CALCIUM
     Dosage: UNK UNK, UNK
     Route: 041
     Dates: start: 20180219, end: 20180219
  10. FLUOROURACIL. [Suspect]
     Active Substance: FLUOROURACIL
     Dosage: UNK UNK, UNK
     Route: 041
     Dates: start: 20180219, end: 20180219
  11. RAMIPRIL. [Concomitant]
     Active Substance: RAMIPRIL

REACTIONS (3)
  - Diarrhoea [Recovered/Resolved]
  - Hypokalaemia [Recovered/Resolved]
  - Electrocardiogram abnormal [Recovered/Resolved]

NARRATIVE: CASE EVENT DATE: 20180211
